FAERS Safety Report 12136581 (Version 1)
Quarter: 2016Q1

REPORT INFORMATION
  Report Type: Spontaneous
  Country: US (occurrence: None)
  Receive Date: 20160301
  Receipt Date: 20160301
  Transmission Date: 20160526
  Serious: No
  Sender: FDA-Public Use
  Company Number: None

PATIENT
  Sex: Female

DRUGS (5)
  1. HUMALOG [Suspect]
     Active Substance: INSULIN LISPRO
  2. LANTUS [Concomitant]
     Active Substance: INSULIN GLARGINE
  3. HUMULIN NOS [Suspect]
     Active Substance: INSULIN HUMAN
  4. TOUJEO [Concomitant]
     Active Substance: INSULIN GLARGINE
  5. NOVOLOG [Concomitant]
     Active Substance: INSULIN ASPART

REACTIONS (12)
  - Loss of consciousness [None]
  - Scleroderma [None]
  - Impaired work ability [None]
  - Malabsorption from injection site [None]
  - Diabetes mellitus inadequate control [None]
  - Confusional state [None]
  - Skin hypertrophy [None]
  - Blood glucose increased [None]
  - Hyperhidrosis [None]
  - Road traffic accident [None]
  - Radiation injury [None]
  - Arthritis [None]
